FAERS Safety Report 11274378 (Version 3)
Quarter: 2016Q1

REPORT INFORMATION
  Report Type: Spontaneous
  Country: US (occurrence: US)
  Receive Date: 20150715
  Receipt Date: 20160114
  Transmission Date: 20160525
  Serious: Yes (Hospitalization, Other)
  Sender: FDA-Public Use
  Company Number: US-BAYER-2015-370732

PATIENT
  Age: 47 Year
  Sex: Female

DRUGS (9)
  1. BETASERON [Suspect]
     Active Substance: INTERFERON BETA-1B
     Indication: MULTIPLE SCLEROSIS
     Dosage: 0.3 MG, QOD
     Route: 058
  2. BACLOFEN. [Concomitant]
     Active Substance: BACLOFEN
  3. VITAMIN B12 [Concomitant]
     Active Substance: CYANOCOBALAMIN
  4. METOPROLOL TARTRATE. [Concomitant]
     Active Substance: METOPROLOL TARTRATE
  5. ADDERALL [Concomitant]
     Active Substance: AMPHETAMINE ASPARTATE\AMPHETAMINE SULFATE\DEXTROAMPHETAMINE SACCHARATE\DEXTROAMPHETAMINE SULFATE
  6. CALCIUM [Concomitant]
     Active Substance: CALCIUM
  7. SPIRONOLACTONE. [Concomitant]
     Active Substance: SPIRONOLACTONE
  8. AMLODIPINE BESYLATE. [Concomitant]
     Active Substance: AMLODIPINE BESYLATE
  9. LISINOPRIL. [Concomitant]
     Active Substance: LISINOPRIL

REACTIONS (15)
  - Muscular weakness [None]
  - Multiple sclerosis relapse [None]
  - Affect lability [None]
  - Fall [None]
  - Visual impairment [None]
  - Fall [None]
  - Fatigue [None]
  - Multiple sclerosis relapse [None]
  - Gait disturbance [None]
  - Fall [None]
  - Skin abrasion [None]
  - Fall [None]
  - Implantable cardiac monitor insertion [None]
  - Heart rate decreased [None]
  - Contusion [None]

NARRATIVE: CASE EVENT DATE: 2015
